FAERS Safety Report 7559113-8 (Version None)
Quarter: 2011Q2

REPORT INFORMATION
  Report Type: 
  Country: None (occurrence: None)
  Receive Date: 20110525
  Receipt Date: 20110322
  Transmission Date: 20111010
  Serious: No
  Sender: FDA-Public Use
  Company Number: 325394

PATIENT
  Age: 61 Year
  Sex: Male

DRUGS (3)
  1. VICTOZA [Suspect]
     Indication: TYPE 2 DIABETES MELLITUS
     Dosage: 1.8 MG, QD, SUBCUTANEOUS
     Route: 058
     Dates: start: 20110301
  2. ACTOSE (PIOGLITAZONE HYDROCHLORIDE) [Concomitant]
  3. ACCUPRIL [Concomitant]

REACTIONS (4)
  - FEELING ABNORMAL [None]
  - WEIGHT DECREASED [None]
  - INSOMNIA [None]
  - DECREASED APPETITE [None]
